FAERS Safety Report 7578641-2 (Version None)
Quarter: 2011Q2

REPORT INFORMATION
  Report Type: 
  Country: None (occurrence: None)
  Receive Date: 20110628
  Receipt Date: 20110620
  Transmission Date: 20111010
  Serious: Yes (Other)
  Sender: FDA-Public Use
  Company Number: PHHY2011ZA04865

PATIENT
  Age: 78 Year
  Sex: Female

DRUGS (5)
  1. BISOPROLOL [Concomitant]
  2. ZOLEDRONIC ACID [Suspect]
     Dosage: 5 MG/100 ML
     Dates: start: 20091201
  3. B-CAL [Concomitant]
  4. PREDNISONE [Concomitant]
  5. SULFASALAZINE [Concomitant]

REACTIONS (4)
  - CARDIAC FAILURE CONGESTIVE [None]
  - MALAISE [None]
  - ATRIAL FIBRILLATION [None]
  - FALL [None]
